FAERS Safety Report 5796468-9 (Version None)
Quarter: 2008Q3

REPORT INFORMATION
  Report Type: 
  Country: None (occurrence: None)
  Receive Date: 20080701
  Receipt Date: 20080620
  Transmission Date: 20090109
  Serious: Yes (Hospitalization)
  Sender: FDA-Public Use
  Company Number: PHHY2008FR11616

PATIENT
  Sex: Female

DRUGS (2)
  1. SANDOSTATIN [Suspect]
     Indication: PERITONEAL CARCINOMA
     Dosage: 300 UG/DAY
     Route: 058
  2. SANDOSTATIN [Suspect]
     Dosage: 600 UG/DAY
     Route: 058

REACTIONS (1)
  - HYPERCALCAEMIA [None]
